FAERS Safety Report 9138580 (Version 1)
Quarter: 2013Q1

REPORT INFORMATION
  Report Type: Spontaneous
  Country: US (occurrence: None)
  Receive Date: 20130227
  Receipt Date: 20130227
  Transmission Date: 20140127
  Serious: Yes (Death, Life-Threatening, Hospitalization, Other)
  Sender: FDA-Public Use
  Company Number: SYM-2013-00897

PATIENT
  Age: 50 Year
  Sex: Female

DRUGS (12)
  1. BUPROPION [Suspect]
     Indication: BIPOLAR DISORDER
     Route: 048
     Dates: start: 20120327
  2. UNKNOWN DRUG [Suspect]
     Indication: LUNG NEOPLASM MALIGNANT
     Route: 048
     Dates: start: 20120726, end: 20120922
  3. DULOXETINE [Suspect]
     Indication: BIPOLAR DISORDER
     Route: 048
     Dates: start: 20120327
  4. OXYCODONE (OXYCODONE) (OXYCODONE) [Suspect]
     Indication: PAIN
     Route: 048
     Dates: start: 20120810
  5. MORPHINE [Suspect]
     Indication: PAIN
     Route: 048
     Dates: start: 20120327
  6. PRAZOSIN [Suspect]
     Indication: HYPERTENSION
     Route: 048
     Dates: start: 20120810
  7. OXYCODONE HYDROCHLORIDE [Suspect]
     Indication: PAIN
     Route: 048
     Dates: start: 20120810
  8. PERCOCET [Suspect]
     Indication: BIPOLAR DISORDER
     Dates: start: 20120327
  9. CLONAZEPAM (CLONAZEPAM) (CLONAZEPAM) [Suspect]
     Indication: BIPOLAR DISORDER
     Route: 048
     Dates: start: 20120327
  10. TOPIRAMATE [Suspect]
     Route: 048
     Dates: start: 20120329
  11. OLANZAPINE [Suspect]
     Indication: BIPOLAR DISORDER
     Route: 048
     Dates: start: 20120327
  12. DACOMITINIB [Suspect]
     Indication: BIPOLAR DISORDER

REACTIONS (3)
  - Hypovolaemic shock [None]
  - Gastrointestinal haemorrhage [None]
  - Small intestinal obstruction [None]
